FAERS Safety Report 20344030 (Version 1)
Quarter: 2022Q1

REPORT INFORMATION
  Report Type: Spontaneous
  Country: US (occurrence: US)
  Receive Date: 20220118
  Receipt Date: 20220118
  Transmission Date: 20220423
  Serious: No
  Sender: FDA-Public Use
  Company Number: US-JNJFOC-20220115917

PATIENT
  Sex: Male

DRUGS (3)
  1. STELARA [Suspect]
     Active Substance: USTEKINUMAB
     Indication: Ankylosing spondylitis
     Route: 058
  2. STELARA [Suspect]
     Active Substance: USTEKINUMAB
     Indication: Psoriatic arthropathy
     Route: 058
     Dates: start: 201909
  3. STELARA [Suspect]
     Active Substance: USTEKINUMAB
     Indication: Psoriasis

REACTIONS (5)
  - Arthralgia [Unknown]
  - Skin exfoliation [Unknown]
  - Inappropriate schedule of product administration [Unknown]
  - Off label use [Unknown]
  - Product dose omission issue [Unknown]

NARRATIVE: CASE EVENT DATE: 20200401
